FAERS Safety Report 7078580-X (Version None)
Quarter: 2010Q4

REPORT INFORMATION
  Report Type: 
  Country: None (occurrence: None)
  Receive Date: 20101102
  Receipt Date: 20101023
  Transmission Date: 20110411
  Serious: Yes (Death, Life-Threatening, Hospitalization, Disabling, Other)
  Sender: FDA-Public Use
  Company Number: PH-GENZYME-THYM-1001914

PATIENT
  Age: 60 Year
  Sex: Male

DRUGS (7)
  1. THYMOGLOBULIN [Suspect]
     Indication: PROPHYLAXIS AGAINST TRANSPLANT REJECTION
     Dosage: UNK
     Route: 042
     Dates: start: 20100101
  2. TACROLIMUS [Concomitant]
     Dosage: 2 MG, BID
     Dates: start: 20100801
  3. TACROLIMUS [Concomitant]
     Dosage: 1 MG, BID
     Dates: end: 20101009
  4. MYCOPHENOLATE MOFETIL [Concomitant]
     Dosage: 500 MG, TID
     Dates: start: 20100801
  5. MYCOPHENOLATE MOFETIL [Concomitant]
     Dosage: 250 MG, TID
     Dates: start: 20100101, end: 20101009
  6. PREDNISONE [Concomitant]
     Dosage: 50 MG, UNK
     Dates: start: 20100801
  7. PREDNISONE [Concomitant]
     Dosage: 10 MG, UNK
     Dates: start: 20100801

REACTIONS (3)
  - CANDIDA PNEUMONIA [None]
  - PULMONARY MASS [None]
  - RESPIRATORY FAILURE [None]
